FAERS Safety Report 7325382-2 (Version None)
Quarter: 2011Q1

REPORT INFORMATION
  Report Type: 
  Country: None (occurrence: None)
  Receive Date: 20110302
  Receipt Date: 20110221
  Transmission Date: 20110831
  Serious: Yes (Other)
  Sender: FDA-Public Use
  Company Number: DE-JNJFOC-20110205885

PATIENT
  Sex: Female
  Weight: 84 kg

DRUGS (4)
  1. PREDNISOLONE [Concomitant]
     Indication: PREMEDICATION
     Route: 042
  2. REMICADE [Suspect]
     Indication: CROHN'S DISEASE
     Dosage: 100MG AMPOULES
     Route: 042
  3. REMICADE [Suspect]
     Route: 042
  4. DIMETINDEN MALEATE [Concomitant]
     Indication: PREMEDICATION
     Route: 042

REACTIONS (5)
  - TACHYCARDIA [None]
  - INFUSION RELATED REACTION [None]
  - DYSPNOEA [None]
  - BLOOD PRESSURE INCREASED [None]
  - HYPERTHERMIA [None]
